FAERS Safety Report 19397740 (Version 1)
Quarter: 2021Q2

REPORT INFORMATION
  Report Type: Spontaneous
  Country: US (occurrence: US)
  Receive Date: 20210610
  Receipt Date: 20210610
  Transmission Date: 20210717
  Serious: Yes (Hospitalization)
  Sender: FDA-Public Use
  Company Number: US-CADILA HEALTHCARE LIMITED-US-ZYDUS-066649

PATIENT

DRUGS (5)
  1. LISINOPRIL. [Concomitant]
     Active Substance: LISINOPRIL
     Indication: PRODUCT USED FOR UNKNOWN INDICATION
     Dosage: UNK
  2. ATORVASTATIN [Concomitant]
     Active Substance: ATORVASTATIN
     Indication: PRODUCT USED FOR UNKNOWN INDICATION
  3. CETIRIZINE [Concomitant]
     Active Substance: CETIRIZINE HYDROCHLORIDE
     Indication: PRODUCT USED FOR UNKNOWN INDICATION
     Dosage: UNK
  4. TIZANIDINE. [Suspect]
     Active Substance: TIZANIDINE
     Indication: PRODUCT USED FOR UNKNOWN INDICATION
     Dosage: 80 MILLIGRAM, QID
     Route: 065
  5. LEVOTHYROXINE. [Concomitant]
     Active Substance: LEVOTHYROXINE
     Indication: PRODUCT USED FOR UNKNOWN INDICATION
     Dosage: UNK

REACTIONS (12)
  - Hypomagnesaemia [Recovering/Resolving]
  - Hyporeflexia [Unknown]
  - Intentional overdose [Unknown]
  - Vomiting [Unknown]
  - Electrocardiogram U-wave abnormality [Recovered/Resolved]
  - Depressed level of consciousness [Unknown]
  - Hypotonia [Unknown]
  - Hypokalaemia [Recovered/Resolved]
  - Potassium wasting nephropathy [Unknown]
  - Asthenia [Unknown]
  - Acute kidney injury [Recovered/Resolved]
  - Electrocardiogram QT prolonged [Recovered/Resolved]
